FAERS Safety Report 12132012 (Version 1)
Quarter: 2016Q1

REPORT INFORMATION
  Report Type: Spontaneous
  Country: US (occurrence: None)
  Receive Date: 20160229
  Receipt Date: 20160229
  Transmission Date: 20160526
  Serious: Yes (Other)
  Sender: FDA-Public Use
  Company Number: None

PATIENT
  Age: 57 Year
  Sex: Male
  Weight: 93.1 kg

DRUGS (3)
  1. FONDAPARINUX [Suspect]
     Active Substance: FONDAPARINUX
     Indication: HYPERCOAGULATION
     Dosage: ML EVERY DAY SC
     Route: 058
     Dates: start: 20120302
  2. FONDAPARINUX [Suspect]
     Active Substance: FONDAPARINUX
     Indication: THROMBOSIS PROPHYLAXIS
     Dosage: ML EVERY DAY SC
     Route: 058
     Dates: start: 20120302
  3. FONDAPARINUX [Suspect]
     Active Substance: FONDAPARINUX
     Indication: VASCULAR OPERATION
     Dosage: ML EVERY DAY SC
     Route: 058
     Dates: start: 20120302

REACTIONS (3)
  - Pain in extremity [None]
  - Condition aggravated [None]
  - Product substitution issue [None]

NARRATIVE: CASE EVENT DATE: 20150930
